FAERS Safety Report 8845694 (Version 2)
Quarter: 2013Q1

REPORT INFORMATION
  Report Type: Report from Study
  Country: FR (occurrence: FR)
  Receive Date: 20121017
  Receipt Date: 20130102
  Transmission Date: 20140127
  Serious: Yes (Hospitalization)
  Sender: FDA-Public Use
  Company Number: FR-ROCHE-662021

PATIENT
  Age: 82 Year
  Sex: Female
  Weight: 45 kg

DRUGS (9)
  1. RITUXIMAB [Suspect]
     Indication: LYMPHOMA
     Dosage: MAINTAINENCE THERAPY; 2ND CYCLE: 21/4/09 3RD: 15/7/09 4TH: 7/10/09
     Route: 065
  2. RITUXIMAB [Suspect]
     Dosage: 1ST CYCLE AFTER LYMPHOMA RELAPSE; 2ND: 22/04/08
     Route: 065
  3. RITUXIMAB [Suspect]
     Dosage: 3RD CYCLE; 4TH ON 17/06/08, 5TH: 18 /07/08, 6TH: 20/08/08
     Route: 065
  4. RITUXIMAB [Suspect]
     Dosage: FIRST LINE TREATMENT ALONG WITH COP REGIMEN
     Route: 065
  5. FLUDARABINE [Suspect]
     Indication: LYMPHOMA
     Dosage: ROUTE: INTRAVENOUS; 2ND CYCLE ON  22 APR 2008
     Route: 050
  6. FLUDARABINE [Suspect]
     Dosage: ADMINSTERED ORALLY INSTEAD OF BY INTRAVENOUS ROUTE
     Route: 050
  7. CYCLOPHOSPHAMIDE [Suspect]
     Indication: LYMPHOMA
     Route: 065
  8. PREDNISONE [Suspect]
     Indication: LYMPHOMA
     Route: 065
  9. VINCRISTINE [Suspect]
     Indication: LYMPHOMA
     Route: 065

REACTIONS (3)
  - Colitis ulcerative [Recovered/Resolved]
  - Dyspepsia [Unknown]
  - Asthenia [Unknown]
